FAERS Safety Report 19661344 (Version 1)
Quarter: 2021Q3

REPORT INFORMATION
  Report Type: Spontaneous
  Country: GB (occurrence: GB)
  Receive Date: 20210805
  Receipt Date: 20210805
  Transmission Date: 20211014
  Serious: Yes (Other)
  Sender: FDA-Public Use
  Company Number: GB-TEVA-2021-GB-1938618

PATIENT
  Age: 71 Year
  Sex: Male

DRUGS (1)
  1. SIMVASTATIN. [Suspect]
     Active Substance: SIMVASTATIN
     Indication: ILL-DEFINED DISORDER
     Dosage: THE PATIENT WAS DISPENSED SIMVASTATIN 40MG RATHER THAN THEIR PRESCRIBED MEDICATION OF SIMVASTATIN 10
     Route: 048

REACTIONS (2)
  - Fall [Unknown]
  - Medication error [Unknown]
